FAERS Safety Report 4445839-1 (Version None)
Quarter: 2004Q3

REPORT INFORMATION
  Report Type: 
  Country: None (occurrence: None)
  Receive Date: 20040908
  Receipt Date: 20040908
  Transmission Date: 20050211
  Serious: Yes (Hospitalization)
  Sender: FDA-Public Use
  Company Number: None

PATIENT
  Age: 55 Year
  Sex: Female

DRUGS (15)
  1. NAPROXEN [Suspect]
     Indication: PAIN
     Dosage: 500 MG BID
     Dates: start: 20001001
  2. PROMETHAZINE [Concomitant]
  3. HYDROXYZINE [Concomitant]
  4. LORATADINE [Concomitant]
  5. FENTANYL [Concomitant]
  6. ZOLMITRIPTON [Concomitant]
  7. ALPRAZOLAM [Concomitant]
  8. CLONAZEPAM [Concomitant]
  9. GABAPENTIN [Concomitant]
  10. PAROXETINE HCL [Concomitant]
  11. RISPERIDONE [Concomitant]
  12. VERAPAMIL [Concomitant]
  13. LOVASTATIN [Concomitant]
  14. BISACODYL [Concomitant]
  15. OMEPAMAZOLE [Concomitant]

REACTIONS (1)
  - GASTRITIS [None]
